FAERS Safety Report 5265050-4 (Version None)
Quarter: 2007Q1

REPORT INFORMATION
  Report Type: 
  Country: None (occurrence: None)
  Receive Date: 20070314
  Receipt Date: 20070302
  Transmission Date: 20070707
  Serious: Yes (Hospitalization, Other)
  Sender: FDA-Public Use
  Company Number: HQWYE644228NOV06

PATIENT
  Sex: Male
  Weight: 90.8 kg

DRUGS (6)
  1. EFFEXOR XR [Suspect]
     Indication: DEPRESSION
     Route: 048
     Dates: start: 20060801, end: 20061001
  2. EFFEXOR XR [Suspect]
     Route: 048
     Dates: start: 20061001, end: 20061124
  3. EFFEXOR XR [Suspect]
     Route: 048
     Dates: start: 20061125
  4. HEPARIN [Concomitant]
     Dosage: UNKNOWN - ^FLUSHES^
     Route: 042
  5. GLUCOSE INJECTION [Concomitant]
     Dosage: UNKNOWN
     Route: 042
  6. IBUPROFEN [Concomitant]
     Dosage: UNKNOWN

REACTIONS (7)
  - ANGIOPATHY [None]
  - BLOOD PRESSURE INCREASED [None]
  - CONTUSION [None]
  - OEDEMA PERIPHERAL [None]
  - RASH ERYTHEMATOUS [None]
  - RASH PUSTULAR [None]
  - SCAR [None]
